FAERS Safety Report 10216123 (Version 2)
Quarter: 2014Q3

REPORT INFORMATION
  Report Type: Spontaneous
  Country: US (occurrence: None)
  Receive Date: 20140602
  Receipt Date: 20140709
  Transmission Date: 20150326
  Serious: Yes (Hospitalization, Other)
  Sender: FDA-Public Use
  Company Number: 2014-19625

PATIENT
  Age: 57 Year
  Sex: Male
  Weight: 124.7 kg

DRUGS (1)
  1. EYLEA [Suspect]
     Active Substance: AFLIBERCEPT
     Indication: AGE-RELATED MACULAR DEGENERATION
     Route: 031
     Dates: start: 20140515, end: 20140515

REACTIONS (4)
  - Anaphylactic shock [None]
  - Convulsion [None]
  - Hypotension [None]
  - Loss of consciousness [None]

NARRATIVE: CASE EVENT DATE: 20140515
